FAERS Safety Report 18601563 (Version 2)
Quarter: 2021Q3

REPORT INFORMATION
  Report Type: Report from Study
  Country: US (occurrence: US)
  Receive Date: 20201210
  Receipt Date: 20210925
  Transmission Date: 20211014
  Serious: No
  Sender: FDA-Public Use
  Company Number: US-TAKEDA-2020TUS055836

PATIENT
  Age: 77 Year
  Sex: Male
  Weight: 102.04 kg

DRUGS (56)
  1. KRILL OIL [Concomitant]
     Active Substance: DIETARY SUPPLEMENT\KRILL OIL
  2. VITAMIN D3 [Concomitant]
     Active Substance: CHOLECALCIFEROL
  3. ALPHA LIPOIC ACID [Concomitant]
     Active Substance: .ALPHA.-LIPOIC ACID
  4. CUVITRU [Suspect]
     Active Substance: HUMAN IMMUNOGLOBULIN G
     Indication: COMBINED IMMUNODEFICIENCY
     Dosage: 30 GRAM, Q2WEEKS
     Route: 058
     Dates: start: 20191024
  5. ARMOUR THYROID [Concomitant]
     Active Substance: THYROID, PORCINE
  6. CALCIUM [Concomitant]
     Active Substance: CALCIUM
  7. VITAMIN K2 [MENAQUINONE] [Concomitant]
     Active Substance: MENAQUINONE 6
  8. GABAPENTIN. [Concomitant]
     Active Substance: GABAPENTIN
     Indication: PRODUCT USED FOR UNKNOWN INDICATION
     Route: 065
  9. LMX4 [Concomitant]
     Active Substance: LIDOCAINE
  10. FLOMAX [Concomitant]
     Active Substance: TAMSULOSIN HYDROCHLORIDE
  11. DHA [Concomitant]
     Active Substance: DIETARY SUPPLEMENT
  12. SODIUM BICARBONATE. [Concomitant]
     Active Substance: SODIUM BICARBONATE
  13. L?CARNITINE [LEVOCARNITINE] [Concomitant]
     Active Substance: LEVOCARNITINE
  14. DILTIAZEM. [Concomitant]
     Active Substance: DILTIAZEM
  15. RIBOFLAVIN [Concomitant]
     Active Substance: RIBOFLAVIN
  16. RASPBERRY KETONE [Concomitant]
     Active Substance: RASPBERRY KETONE
  17. HAWTHORN [CRATAEGUS LAEVIGATA] [Concomitant]
  18. NATTOKINASE [Concomitant]
     Active Substance: NATTOKINASE
  19. DIPHENHYDRAMINE. [Concomitant]
     Active Substance: DIPHENHYDRAMINE
  20. VITAMIN B6 [Concomitant]
     Active Substance: PYRIDOXINE HYDROCHLORIDE
  21. VITAMIN C [Concomitant]
     Active Substance: ASCORBIC ACID
  22. METOPROLOL. [Concomitant]
     Active Substance: METOPROLOL
  23. AMOXICILLIN. [Concomitant]
     Active Substance: AMOXICILLIN
  24. MAGNESIUM [Concomitant]
     Active Substance: MAGNESIUM
  25. VITAMIN B12 [VITAMIN B12 NOS] [Concomitant]
     Active Substance: CYANOCOBALAMIN
  26. ZINC. [Concomitant]
     Active Substance: ZINC
  27. METFORMIN [Concomitant]
     Active Substance: METFORMIN HYDROCHLORIDE
  28. COPPER [Concomitant]
     Active Substance: COPPER
  29. PAPAYA ENZYME [PAPAIN] [Concomitant]
  30. CURCUMIN [Concomitant]
     Active Substance: CURCUMIN
  31. VITAMIN A [RETINOL] [Concomitant]
     Active Substance: RETINOL
  32. CIALIS [Concomitant]
     Active Substance: TADALAFIL
  33. DEPO?TESTOSTERONE [Concomitant]
     Active Substance: TESTOSTERONE CYPIONATE
  34. TURMERIC [CURCUMA LONGA RHIZOME] [Concomitant]
     Active Substance: HERBALS\TURMERIC
  35. GRAPE SEED EXTRACT [VITIS VINIFERA SEED] [Concomitant]
  36. SODIUM NITRATE. [Concomitant]
     Active Substance: SODIUM NITRATE
  37. GINGER [ZINGIBER OFFICINALE RHIZOME] [Concomitant]
     Active Substance: GINGER
  38. VITAMIN B2 [Concomitant]
     Active Substance: RIBOFLAVIN
     Indication: PRODUCT USED FOR UNKNOWN INDICATION
     Route: 065
  39. COENZYME Q10 [Concomitant]
     Active Substance: DIETARY SUPPLEMENT\UBIDECARENONE
     Indication: PRODUCT USED FOR UNKNOWN INDICATION
     Route: 065
  40. ACETAMINOPHEN. [Concomitant]
     Active Substance: ACETAMINOPHEN
  41. EPINEPHRINE. [Concomitant]
     Active Substance: EPINEPHRINE
  42. AFRIN [OXYMETAZOLINE] [Concomitant]
  43. COENZYME Q10 [Concomitant]
     Active Substance: DIETARY SUPPLEMENT\UBIDECARENONE
  44. ECHINACEA ANGUSTIFOLIA [Concomitant]
     Active Substance: ECHINACEA ANGUSTIFOLIA
  45. OLIVE LEAVES EXTRACT [Concomitant]
  46. LOSARTAN. [Concomitant]
     Active Substance: LOSARTAN
  47. BLUEBERRY [VACCINIUM MYRTILLUS] [Concomitant]
  48. CHROMIUM [Concomitant]
     Active Substance: CHROMIC CHLORIDE\CHROMIUM
  49. PHOSPHORUS [Concomitant]
     Active Substance: PHOSPHORUS
  50. FOLIC ACID. [Concomitant]
     Active Substance: FOLIC ACID
     Indication: PRODUCT USED FOR UNKNOWN INDICATION
     Route: 065
  51. WARFARIN [Concomitant]
     Active Substance: WARFARIN
  52. FINASTERIDE. [Concomitant]
     Active Substance: FINASTERIDE
  53. CINNAMON [CINNAMOMUM VERUM] [Concomitant]
  54. COLLAGEN [Concomitant]
     Active Substance: COLLAGEN
  55. SELENIUM [Concomitant]
     Active Substance: SELENIUM
  56. RESVERATROL [Concomitant]
     Active Substance: DIETARY SUPPLEMENT\RESVERATROL

REACTIONS (1)
  - Prostatitis [Unknown]

NARRATIVE: CASE EVENT DATE: 20201118
